FAERS Safety Report 5778031-9 (Version None)
Quarter: 2008Q2

REPORT INFORMATION
  Report Type: 
  Country: None (occurrence: None)
  Receive Date: 20080619
  Receipt Date: 20080609
  Transmission Date: 20081010
  Serious: Yes (Hospitalization)
  Sender: FDA-Public Use
  Company Number: FR-BRISTOL-MYERS SQUIBB COMPANY-14231492

PATIENT
  Age: 64 Year
  Sex: Male

DRUGS (8)
  1. GLUCOVANCE [Suspect]
     Indication: TYPE 2 DIABETES MELLITUS
     Route: 048
  2. LYRICA [Suspect]
     Route: 048
     Dates: start: 20080217, end: 20080307
  3. CLAMOXYL [Suspect]
     Indication: PHARYNGITIS
     Route: 048
     Dates: start: 20080305, end: 20080310
  4. PANTOPRAZOLE SODIUM [Suspect]
     Route: 048
     Dates: start: 20080207, end: 20080307
  5. LOVENOX [Concomitant]
     Route: 058
     Dates: start: 20080220
  6. FENOFIBRATE [Concomitant]
     Route: 048
     Dates: end: 20080305
  7. JOSIR [Concomitant]
     Dates: start: 20080214
  8. RIVOTRIL [Concomitant]
     Dosage: 1 DOSAGE FORM = 45GTT
     Route: 048
     Dates: start: 20080218

REACTIONS (2)
  - LEUKOPENIA [None]
  - NEUTROPENIA [None]
